FAERS Safety Report 6823288-6 (Version None)
Quarter: 2010Q3

REPORT INFORMATION
  Report Type: 
  Country: None (occurrence: None)
  Receive Date: 20100708
  Receipt Date: 20100628
  Transmission Date: 20110219
  Serious: Yes (Other)
  Sender: FDA-Public Use
  Company Number: TW-PFIZER INC-2010081467

PATIENT
  Age: 14 Year
  Sex: Male
  Weight: 54.2 kg

DRUGS (2)
  1. ZOLOFT [Suspect]
     Indication: PRADER-WILLI SYNDROME
  2. CONCERTA [Suspect]
     Dosage: 18 MG, 1X/DAY

REACTIONS (6)
  - ABNORMAL BEHAVIOUR [None]
  - AGGRESSION [None]
  - DERMATILLOMANIA [None]
  - HYPERPHAGIA [None]
  - PRADER-WILLI SYNDROME [None]
  - PSYCHOTIC DISORDER [None]
